FAERS Safety Report 10340150 (Version 2)
Quarter: 2014Q4

REPORT INFORMATION
  Report Type: Spontaneous
  Country: JP (occurrence: JP)
  Receive Date: 20140724
  Receipt Date: 20141013
  Transmission Date: 20150528
  Serious: Yes (Hospitalization)
  Sender: FDA-Public Use
  Company Number: JP-BAYER-2014-106815

PATIENT
  Age: 84 Year
  Sex: Male
  Weight: 51 kg

DRUGS (5)
  1. BAYASPIRIN [Suspect]
     Active Substance: ASPIRIN
     Indication: PROPHYLAXIS
     Dosage: 100 MG, QD
     Route: 048
     Dates: end: 20140520
  2. BLOPRESS [Concomitant]
     Active Substance: CANDESARTAN CILEXETIL
     Dosage: UNK
     Route: 048
  3. BAYASPIRIN [Suspect]
     Active Substance: ASPIRIN
     Indication: PROPHYLAXIS
     Dosage: UNK
     Route: 048
     Dates: start: 2014
  4. MUCOSTA [Concomitant]
     Active Substance: REBAMIPIDE
     Dosage: UNK
  5. ZYLORIC [Concomitant]
     Active Substance: ALLOPURINOL
     Dosage: UNK
     Route: 048

REACTIONS (4)
  - Inflammation [None]
  - Diarrhoea [Not Recovered/Not Resolved]
  - Colitis ulcerative [Not Recovered/Not Resolved]
  - Colitis microscopic [Not Recovered/Not Resolved]

NARRATIVE: CASE EVENT DATE: 2014
